FAERS Safety Report 9153141 (Version 1)
Quarter: 2013Q1

REPORT INFORMATION
  Report Type: Spontaneous
  Country: GB (occurrence: None)
  Receive Date: 20130201
  Receipt Date: 20130201
  Transmission Date: 20140127
  Serious: Yes (Other)
  Sender: FDA-Public Use
  Company Number: 2013-01497

PATIENT
  Age: 77 Year
  Sex: Female

DRUGS (1)
  1. MIRTAZAPINE [Suspect]
     Indication: DEPRESSION
     Dosage: NOT STATED (LOWEST DOSE), UNKNOWN

REACTIONS (2)
  - Memory impairment [None]
  - Confusional state [None]
